FAERS Safety Report 9204540 (Version 1)
Quarter: 2013Q2

REPORT INFORMATION
  Report Type: Spontaneous
  Country: US (occurrence: US)
  Receive Date: 20130402
  Receipt Date: 20130402
  Transmission Date: 20140414
  Serious: No
  Sender: FDA-Public Use
  Company Number: US-PFIZER INC-2013100287

PATIENT
  Age: 46 Year
  Sex: Male

DRUGS (1)
  1. VIAGRA [Suspect]
     Indication: SEXUAL DYSFUNCTION
     Dosage: 100 MG, TAKE 1 TAB AS NEEDED/ HALF BEFORE SEXUAL ACTIVITY
     Route: 048

REACTIONS (3)
  - General physical health deterioration [Unknown]
  - Limb discomfort [Unknown]
  - Activities of daily living impaired [Unknown]
